FAERS Safety Report 9391031 (Version 1)
Quarter: 2013Q3

REPORT INFORMATION
  Report Type: Spontaneous
  Country: US (occurrence: None)
  Receive Date: 20130705
  Receipt Date: 20130705
  Transmission Date: 20140515
  Serious: No
  Sender: FDA-Public Use
  Company Number: None

PATIENT
  Age: 35 Year
  Sex: Female
  Weight: 68.04 kg

DRUGS (2)
  1. DEPAKOTE [Suspect]
     Indication: DEPRESSION
     Dosage: ONE
     Route: 048
  2. LAMOTRIGINE [Suspect]
     Dosage: ONE
     Route: 048

REACTIONS (3)
  - Dizziness [None]
  - Mood swings [None]
  - Dyspnoea [None]
